FAERS Safety Report 12838064 (Version 1)
Quarter: 2016Q4

REPORT INFORMATION
  Report Type: Spontaneous
  Country: JP (occurrence: JP)
  Receive Date: 20161012
  Receipt Date: 20161012
  Transmission Date: 20170207
  Serious: Yes (Life-Threatening, Other)
  Sender: FDA-Public Use
  Company Number: JP-ACCORD-044711

PATIENT
  Sex: Female

DRUGS (2)
  1. METHOTREXATE. [Suspect]
     Active Substance: METHOTREXATE
     Indication: BREAST CANCER METASTATIC
     Dosage: ON DAY 1 AND DAY 15, EVERY 4 WEEKS
     Route: 042
  2. MITOMYCIN. [Suspect]
     Active Substance: MITOMYCIN
     Indication: BREAST CANCER METASTATIC
     Dosage: ON DAY 1, EVERY 4 WEEKS
     Route: 042

REACTIONS (5)
  - Neutropenia [Unknown]
  - Platelet count decreased [Unknown]
  - Anaemia [Unknown]
  - Haematuria [Recovering/Resolving]
  - Interstitial lung disease [Recovering/Resolving]
